FAERS Safety Report 4585464-5 (Version None)
Quarter: 2005Q1

REPORT INFORMATION
  Report Type: 
  Country: None (occurrence: None)
  Receive Date: 20050214
  Receipt Date: 20041027
  Transmission Date: 20050727
  Serious: Yes (Death)
  Sender: FDA-Public Use
  Company Number: 05-034

PATIENT
  Age: 46 Year
  Sex: Female

DRUGS (14)
  1. DEXAMETHASONE [Suspect]
     Indication: MYELOMA RECURRENCE
     Dates: start: 20011216, end: 20011218
  2. GENASENSE [Concomitant]
  3. PAMIDRONATE DISODIUM [Concomitant]
  4. TRIMETHOPRIM-SULFAMETHOXAZOLE [Concomitant]
  5. RANITIDINE [Concomitant]
  6. SENNA [Concomitant]
  7. VITAMIN B6 [Concomitant]
  8. LEVOTHYROXINE [Concomitant]
  9. MEDROXYPROGESTERONE ACETATE [Concomitant]
  10. VELVET GLOVE [Concomitant]
  11. WARFARIN [Concomitant]
  12. IBUPROFEN [Concomitant]
  13. ACETAMINOPHEN [Concomitant]
  14. OXYCODONE [Concomitant]

REACTIONS (3)
  - AMYLOIDOSIS [None]
  - MULTIPLE MYELOMA [None]
  - PAIN IN EXTREMITY [None]
